FAERS Safety Report 19791374 (Version 1)
Quarter: 2021Q3

REPORT INFORMATION
  Report Type: Spontaneous
  Country: DE (occurrence: DE)
  Receive Date: 20210906
  Receipt Date: 20210906
  Transmission Date: 20211014
  Serious: Yes (Other)
  Sender: FDA-Public Use
  Company Number: DE-NOVOPROD-842529

PATIENT
  Age: 34 Year
  Sex: Female
  Weight: 80 kg

DRUGS (2)
  1. SAXENDA [Suspect]
     Active Substance: LIRAGLUTIDE
     Dosage: 0.6 MG, QD
     Route: 065
     Dates: start: 20210823, end: 20210824
  2. SAXENDA [Suspect]
     Active Substance: LIRAGLUTIDE
     Indication: WEIGHT CONTROL
     Dosage: 0.6 MG, QD
     Route: 065
     Dates: start: 20210821, end: 20210822

REACTIONS (8)
  - Nausea [Not Recovered/Not Resolved]
  - Loss of consciousness [Unknown]
  - Dyspnoea [Unknown]
  - Headache [Not Recovered/Not Resolved]
  - Abdominal pain [Unknown]
  - Paralysis [Not Recovered/Not Resolved]
  - Diarrhoea [Not Recovered/Not Resolved]
  - Vomiting [Not Recovered/Not Resolved]

NARRATIVE: CASE EVENT DATE: 20210821
